FAERS Safety Report 5097266-4 (Version None)
Quarter: 2006Q3

REPORT INFORMATION
  Report Type: 
  Country: None (occurrence: None)
  Receive Date: 20060829
  Receipt Date: 20060817
  Transmission Date: 20061208
  Serious: Yes (Other)
  Sender: FDA-Public Use
  Company Number: CHPA2006US08248

PATIENT
  Age: 70 Year
  Sex: Male
  Weight: 90.7 kg

DRUGS (3)
  1. EXCEDRIN EXTRA STRENGTH (NCH) CAFFEINE CITRATE, ACETYLSALICYLIC ACID, [Suspect]
     Indication: HEADACHE
     Dosage: SEE IMAGE
     Route: 048
  2. EXCEDRIN EXTRA STRENGTH (NCH) CAFFEINE CITRATE, ACETYLSALICYLIC ACID, [Suspect]
     Indication: HEADACHE
     Dosage: SEE IMAGE
     Route: 048
  3. EXCEDRIN EXTRA STRENGTH (NCH) CAFFEINE CITRATE, ACETYLSALICYLIC ACID, [Suspect]
     Indication: HEADACHE
     Dosage: SEE IMAGE
     Route: 048

REACTIONS (4)
  - ALOPECIA [None]
  - DRUG ABUSER [None]
  - DRUG EFFECT DECREASED [None]
  - HEADACHE [None]
